FAERS Safety Report 9399175 (Version 1)
Quarter: 2013Q3

REPORT INFORMATION
  Report Type: Report from Study
  Country: US (occurrence: US)
  Receive Date: 20130715
  Receipt Date: 20130715
  Transmission Date: 20140515
  Serious: Yes (Other)
  Sender: FDA-Public Use
  Company Number: US-BRISTOL-MYERS SQUIBB COMPANY-16837411

PATIENT
  Age: 67 Year
  Sex: Male

DRUGS (11)
  1. SAXAGLIPTIN [Suspect]
     Indication: TYPE 2 DIABETES MELLITUS
     Dates: start: 20110812
  2. LEVEMIR [Suspect]
     Indication: TYPE 2 DIABETES MELLITUS
  3. NOVOLOG [Suspect]
     Indication: TYPE 2 DIABETES MELLITUS
     Dates: start: 20120717
  4. ASPIRIN [Concomitant]
     Dates: start: 20120710
  5. CLOPIDOGREL BISULFATE [Concomitant]
     Dates: start: 20120710
  6. ZOSYN [Concomitant]
     Dates: start: 20120711, end: 20120713
  7. CIPROFLOXACIN [Concomitant]
     Dates: start: 20110713
  8. HEPARIN [Concomitant]
     Dosage: ALSO TAKNE ON 08JUL-12JUL12: 5000UNITS
     Dates: start: 20120713, end: 20120716
  9. SODIUM CHLORIDE [Concomitant]
     Dosage: 0.9%
     Dates: start: 20120709, end: 20120716
  10. ALTEPLASE [Concomitant]
     Dates: start: 20120713, end: 20120715
  11. COLLAGENASE [Concomitant]
     Dates: start: 20120711

REACTIONS (2)
  - Aspartate aminotransferase increased [Recovered/Resolved]
  - Alanine aminotransferase increased [Recovered/Resolved]
